FAERS Safety Report 4820626-0 (Version None)
Quarter: 2005Q4

REPORT INFORMATION
  Report Type: 
  Country: None (occurrence: None)
  Receive Date: 20051104
  Receipt Date: 20050920
  Transmission Date: 20060501
  Serious: Yes (Hospitalization)
  Sender: FDA-Public Use
  Company Number: JP-JPN-A20052234

PATIENT
  Age: 59 Year
  Sex: Male
  Weight: 78 kg

DRUGS (11)
  1. VALTREX [Suspect]
     Indication: HERPES SIMPLEX
     Dosage: 500MG TWICE PER DAY
     Route: 048
     Dates: start: 20050915
  2. PARIET [Concomitant]
     Indication: GASTRIC ULCER
     Dosage: 10MG PER DAY
     Route: 048
     Dates: start: 20040901
  3. ALESION [Concomitant]
     Indication: DERMATITIS ALLERGIC
     Dosage: 20MG PER DAY
     Route: 048
     Dates: start: 20040401
  4. ROCALTROL [Concomitant]
     Indication: HYPERPARATHYROIDISM
     Dosage: .5MCG PER DAY
     Route: 048
  5. KOLANTYL [Concomitant]
     Indication: GASTRIC ULCER
     Dosage: 1G PER DAY
     Route: 048
     Dates: start: 20050301
  6. MONILAC [Concomitant]
     Indication: HYPERAMMONAEMIA
     Route: 048
     Dates: start: 20040401
  7. LENDORMIN [Concomitant]
     Indication: INSOMNIA
     Dosage: .25MG PER DAY
     Route: 048
     Dates: start: 20050915
  8. RENAGEL [Concomitant]
     Indication: HYPERPHOSPHATAEMIA
     Dosage: 4.5G PER DAY
     Route: 048
     Dates: start: 20040401
  9. PURSENNID [Concomitant]
     Indication: CONSTIPATION
     Dosage: 12MG PER DAY
     Route: 048
     Dates: start: 20040401
  10. SELBEX [Concomitant]
     Indication: GASTRIC ULCER
     Dosage: 100MG PER DAY
     Route: 048
     Dates: start: 20040401
  11. RISUMIC [Concomitant]
     Indication: PROCEDURAL HYPERTENSION
     Dosage: 20MG PER DAY
     Route: 048
     Dates: start: 20040401

REACTIONS (10)
  - BLOOD CREATININE INCREASED [None]
  - BLOOD UREA INCREASED [None]
  - C-REACTIVE PROTEIN INCREASED [None]
  - DYSARTHRIA [None]
  - GAIT DISTURBANCE [None]
  - HAEMATOCRIT DECREASED [None]
  - HAEMOGLOBIN DECREASED [None]
  - METABOLIC ENCEPHALOPATHY [None]
  - RED BLOOD CELL COUNT DECREASED [None]
  - WHITE BLOOD CELL COUNT INCREASED [None]
